FAERS Safety Report 7956611-X (Version None)
Quarter: 2011Q4

REPORT INFORMATION
  Report Type: 
  Country: None (occurrence: None)
  Receive Date: 20111201
  Receipt Date: 20111116
  Transmission Date: 20120403
  Serious: Yes (Death, Hospitalization)
  Sender: FDA-Public Use
  Company Number: DSM-2011-00316

PATIENT
  Age: 85 Year
  Sex: Male

DRUGS (7)
  1. FUROSEMIDE [Concomitant]
  2. VERAPAMIL [Concomitant]
  3. VIRLIX (CETIRIZINE HYDROCHLORIDE) [Concomitant]
  4. SIMVASTATIN [Concomitant]
  5. CERIS (TROSPIUM CHLORIDE) [Concomitant]
  6. SERETIDE(FLUTICASONE PROPIONATE, SALMETEROL XINAFOATE) [Concomitant]
  7. OLMESARTAN MEDOXOMIL [Suspect]
     Indication: HYPERTENSION
     Dosage: 20 MG (20 MG, 1 IN 1 D)  ORAL
     Route: 048
     Dates: start: 20110126, end: 20110201

REACTIONS (6)
  - VASCULITIS [None]
  - PURPURA [None]
  - GASTROINTESTINAL DISORDER [None]
  - SEPSIS [None]
  - BODY TEMPERATURE DECREASED [None]
  - PLATELET COUNT INCREASED [None]
